FAERS Safety Report 12478360 (Version 2)
Quarter: 2016Q2

REPORT INFORMATION
  Report Type: Report from Study
  Country: US (occurrence: US)
  Receive Date: 20160618
  Receipt Date: 20160618
  Transmission Date: 20160815
  Serious: No
  Sender: FDA-Public Use
  Company Number: US-ASTRAZENECA-2016SE28558

PATIENT
  Age: 992 Month
  Sex: Female

DRUGS (5)
  1. MORPHINE [Concomitant]
     Active Substance: MORPHINE
  2. RANEXA [Concomitant]
     Active Substance: RANOLAZINE
  3. IRESSA [Suspect]
     Active Substance: GEFITINIB
     Indication: LUNG NEOPLASM MALIGNANT
     Route: 048
     Dates: start: 20160304
  4. PHENERGAN [Concomitant]
     Active Substance: PROMETHAZINE HYDROCHLORIDE
  5. PROTONIX [Concomitant]
     Active Substance: PANTOPRAZOLE SODIUM

REACTIONS (22)
  - Headache [Unknown]
  - Proctalgia [Unknown]
  - Lip blister [Unknown]
  - Scab [Not Recovered/Not Resolved]
  - Blister [Not Recovered/Not Resolved]
  - Mouth ulceration [Not Recovered/Not Resolved]
  - Dyspnoea [Not Recovered/Not Resolved]
  - Hypoaesthesia [Unknown]
  - Paraesthesia [Unknown]
  - Acne pustular [Not Recovered/Not Resolved]
  - Skin burning sensation [Unknown]
  - Chest discomfort [Unknown]
  - Diarrhoea [Unknown]
  - Swollen tongue [Not Recovered/Not Resolved]
  - Off label use [Unknown]
  - Tinnitus [Unknown]
  - Nausea [Unknown]
  - Appetite disorder [Unknown]
  - Arterial occlusive disease [Unknown]
  - Chills [Unknown]
  - Back pain [Unknown]
  - Abdominal discomfort [Unknown]

NARRATIVE: CASE EVENT DATE: 201603
